FAERS Safety Report 10246247 (Version 1)
Quarter: 2014Q2

REPORT INFORMATION
  Report Type: Spontaneous
  Country: IL (occurrence: IL)
  Receive Date: 20140619
  Receipt Date: 20140619
  Transmission Date: 20141212
  Serious: Yes (Other)
  Sender: FDA-Public Use
  Company Number: PHHY2014IL074478

PATIENT
  Sex: Female

DRUGS (2)
  1. AFINITOR [Suspect]
     Indication: BREAST CANCER
     Dosage: 10 MG, UNK
     Dates: start: 20140519
  2. ZOMERA [Concomitant]

REACTIONS (3)
  - Pain in jaw [Not Recovered/Not Resolved]
  - Swelling [Not Recovered/Not Resolved]
  - Dysphagia [Not Recovered/Not Resolved]
